FAERS Safety Report 11755528 (Version 4)
Quarter: 2016Q1

REPORT INFORMATION
  Report Type: Spontaneous
  Country: BR (occurrence: BR)
  Receive Date: 20151119
  Receipt Date: 20160218
  Transmission Date: 20160525
  Serious: Yes (Disabling)
  Sender: FDA-Public Use
  Company Number: BR-ASTRAZENECA-2015SF11711

PATIENT
  Age: 911 Month
  Sex: Male
  Weight: 66 kg

DRUGS (6)
  1. CRESTOR [Suspect]
     Active Substance: ROSUVASTATIN CALCIUM
     Indication: BLOOD CHOLESTEROL INCREASED
     Route: 048
     Dates: start: 2010, end: 201510
  2. ASA [Concomitant]
     Active Substance: ASPIRIN
     Indication: ANTICOAGULANT THERAPY
     Route: 048
     Dates: start: 20151112
  3. ASA [Concomitant]
     Active Substance: ASPIRIN
     Indication: ANTICOAGULANT THERAPY
     Route: 048
     Dates: start: 201508, end: 201510
  4. ATACAND COMB [Suspect]
     Active Substance: CANDESARTAN CILEXETIL\FELODIPINE
     Indication: HYPERTENSION
     Dosage: 16 MG/5 MG, DAILY
     Route: 048
     Dates: start: 2010, end: 201510
  5. ATACAND COMB [Suspect]
     Active Substance: CANDESARTAN CILEXETIL\FELODIPINE
     Indication: HYPERTENSION
     Route: 048
     Dates: start: 20151112
  6. SELOZOK [Suspect]
     Active Substance: METOPROLOL SUCCINATE
     Indication: TACHYCARDIA
     Route: 048
     Dates: start: 201509, end: 20160205

REACTIONS (4)
  - Muscle atrophy [Recovering/Resolving]
  - Amyotrophic lateral sclerosis [Recovering/Resolving]
  - Tachycardia [Recovering/Resolving]
  - Weight decreased [Recovering/Resolving]

NARRATIVE: CASE EVENT DATE: 201509
